APPROVED DRUG PRODUCT: ALBUTEROL SULFATE
Active Ingredient: ALBUTEROL SULFATE
Strength: EQ 0.083% BASE
Dosage Form/Route: SOLUTION;INHALATION
Application: A075063 | Product #001
Applicant: EPIC PHARMA LLC
Approved: Feb 9, 1999 | RLD: No | RS: No | Type: DISCN